FAERS Safety Report 20071584 (Version 1)
Quarter: 2021Q4

REPORT INFORMATION
  Report Type: Spontaneous
  Country: CN (occurrence: CN)
  Receive Date: 20211115
  Receipt Date: 20211115
  Transmission Date: 20220303
  Serious: Yes (Hospitalization)
  Sender: FDA-Public Use
  Company Number: CN-BAXTER-2021BAX035494

PATIENT
  Age: 54 Year
  Sex: Female
  Weight: 49 kg

DRUGS (8)
  1. CYCLOPHOSPHAMIDE [Suspect]
     Active Substance: CYCLOPHOSPHAMIDE
     Indication: Breast cancer
     Dosage: PRIOR ADVERSE DRUG REACTION[TRADE NAME]
     Route: 041
  2. CYCLOPHOSPHAMIDE [Suspect]
     Active Substance: CYCLOPHOSPHAMIDE
     Indication: Breast cancer female
     Dosage: CYCLOPHOSPHAMIDE 0.8G + 0.9% SODIUM CHLORIDE 100ML
     Route: 041
     Dates: start: 20211015, end: 20211015
  3. CYCLOPHOSPHAMIDE [Suspect]
     Active Substance: CYCLOPHOSPHAMIDE
     Dosage: DOSE REINTRODUCED
     Route: 041
  4. SODIUM CHLORIDE [Suspect]
     Active Substance: SODIUM CHLORIDE
     Indication: Medication dilution
     Dosage: CYCLOPHOSPHAMIDE 0.8G + 0.9% SODIUM CHLORIDE 100ML
     Route: 041
     Dates: start: 20211015, end: 20211015
  5. SODIUM CHLORIDE [Suspect]
     Active Substance: SODIUM CHLORIDE
     Dosage: DOCETAXEL 120 MG + 0.9% SODIUM CHLORIDE 250ML
     Route: 041
     Dates: start: 20211015, end: 20211015
  6. DOCETAXEL [Suspect]
     Active Substance: DOCETAXEL
     Indication: Breast cancer
     Dosage: PRIOR ADVERSE DRUG REACTION[TRADE NAME]
     Route: 041
  7. DOCETAXEL [Suspect]
     Active Substance: DOCETAXEL
     Indication: Breast cancer female
     Dosage: DOCETAXEL 120 MG + 0.9% SODIUM CHLORIDE 250ML
     Route: 041
     Dates: start: 20211015, end: 20211015
  8. DOCETAXEL [Suspect]
     Active Substance: DOCETAXEL
     Dosage: DOSE REINTRODUCED
     Route: 041

REACTIONS (3)
  - Hepatic function abnormal [Recovering/Resolving]
  - Myelosuppression [Recovering/Resolving]
  - Hepatic function abnormal [Recovered/Resolved]

NARRATIVE: CASE EVENT DATE: 20211025
